FAERS Safety Report 15216632 (Version 1)
Quarter: 2018Q3

REPORT INFORMATION
  Report Type: Spontaneous
  Country: US (occurrence: US)
  Receive Date: 20180730
  Receipt Date: 20180730
  Transmission Date: 20181010
  Serious: No
  Sender: FDA-Public Use
  Company Number: US-SA-2018SA202617

PATIENT
  Age: 54 Year
  Sex: Female

DRUGS (2)
  1. DUPIXENT [Suspect]
     Active Substance: DUPILUMAB
     Dosage: 300 MG, QOW
     Route: 058
     Dates: start: 2018
  2. DUPIXENT [Suspect]
     Active Substance: DUPILUMAB
     Indication: ECZEMA
     Dosage: 2 DF, 1X
     Route: 058
     Dates: start: 201805, end: 201805

REACTIONS (12)
  - Vision blurred [Unknown]
  - Dermatitis [Unknown]
  - Pain [Unknown]
  - Eyelid ptosis [Unknown]
  - Skin exfoliation [Unknown]
  - Pruritus [Unknown]
  - Paraesthesia [Unknown]
  - Eyelid oedema [Unknown]
  - Inflammation [Unknown]
  - Burning sensation [Unknown]
  - Oral herpes [Unknown]
  - Aphthous ulcer [Unknown]
